FAERS Safety Report 6707316-4 (Version None)
Quarter: 2010Q2

REPORT INFORMATION
  Report Type: 
  Country: None (occurrence: None)
  Receive Date: 20100503
  Receipt Date: 20090603
  Transmission Date: 20101027
  Serious: No
  Sender: FDA-Public Use
  Company Number: US-ASTRAZENECA-2009UW07214

PATIENT
  Sex: Female
  Weight: 59 kg

DRUGS (5)
  1. NEXIUM [Suspect]
     Indication: GASTROOESOPHAGEAL REFLUX DISEASE
     Route: 048
  2. ORAL CONTRACEPTIVE [Concomitant]
  3. SINGULAIR [Concomitant]
  4. CHLORAZAPAM [Concomitant]
     Indication: ANXIETY
  5. ALLERGY MEDS [Concomitant]

REACTIONS (10)
  - AGEUSIA [None]
  - CHEST DISCOMFORT [None]
  - DRUG INEFFECTIVE [None]
  - DRY MOUTH [None]
  - GLOSSITIS [None]
  - HOT FLUSH [None]
  - NASOPHARYNGITIS [None]
  - RHINITIS [None]
  - THROAT IRRITATION [None]
  - WEIGHT DECREASED [None]
